FAERS Safety Report 9781937 (Version 1)
Quarter: 2013Q4

REPORT INFORMATION
  Report Type: Spontaneous
  Country: US (occurrence: US)
  Receive Date: 20131225
  Receipt Date: 20131225
  Transmission Date: 20140711
  Serious: No
  Sender: FDA-Public Use
  Company Number: US-TEVA-451940USA

PATIENT
  Sex: Female
  Weight: 86.26 kg

DRUGS (5)
  1. NUVIGIL [Suspect]
     Indication: SLEEP APNOEA SYNDROME
  2. NUVIGIL [Suspect]
     Indication: DEPRESSION
  3. ABILIFY [Suspect]
  4. VITAMIN B12 [Concomitant]
  5. OTHER UNSPECIFIED MEDICATIONS [Concomitant]

REACTIONS (4)
  - Blood triglycerides increased [Not Recovered/Not Resolved]
  - Weight increased [Unknown]
  - Fatigue [Recovered/Resolved]
  - Off label use [Unknown]
